FAERS Safety Report 9491321 (Version 1)
Quarter: 2013Q1

REPORT INFORMATION
  Report Type: Not Available
  Country: US (occurrence: US)
  Receive Date: 20120619
  Receipt Date: 20120619
  Transmission Date: 20140127
  Serious: Yes (Other)
  Sender: FDA-Public Use
  Company Number: US-LUNDBECK-DKLU1079536

PATIENT
  Age: 19 None
  Sex: Male

DRUGS (1)
  1. SABRIL     (TABLET) [Suspect]
     Indication: INFANTILE SPASMS

REACTIONS (2)
  - Convulsion [Unknown]
  - Drug ineffective [Unknown]
